FAERS Safety Report 6650983-4 (Version None)
Quarter: 2010Q1

REPORT INFORMATION
  Report Type: 
  Country: None (occurrence: None)
  Receive Date: 20100325
  Receipt Date: 20100312
  Transmission Date: 20100710
  Serious: No
  Sender: FDA-Public Use
  Company Number: US-BIOGENIDEC-2010BI008886

PATIENT
  Sex: Female

DRUGS (16)
  1. TYSABRI [Suspect]
     Indication: MULTIPLE SCLEROSIS
     Route: 042
     Dates: start: 20070801
  2. DESMOPRESSIN ACETATE [Concomitant]
     Indication: MICTURITION URGENCY
  3. DIAZEPAM [Concomitant]
     Indication: ANXIETY
  4. DIAZEPAM [Concomitant]
     Indication: SLEEP DISORDER
  5. DIAZEPAM [Concomitant]
     Indication: MUSCLE SPASMS
  6. SIMVASTATIN [Concomitant]
     Indication: BLOOD CHOLESTEROL INCREASED
     Dates: start: 20000101
  7. PROVIGIL [Concomitant]
     Indication: FATIGUE
  8. BACLOFEN [Concomitant]
     Indication: MUSCLE SPASMS
  9. CYMBALTA [Concomitant]
     Indication: DEPRESSION
  10. CYMBALTA [Concomitant]
     Indication: ANXIETY
  11. CITALOPRAM HYDROBROMIDE [Concomitant]
     Indication: DEPRESSION
  12. CITALOPRAM HYDROBROMIDE [Concomitant]
     Indication: ANXIETY
  13. CITALOPRAM HYDROBROMIDE [Concomitant]
     Indication: PREMENSTRUAL SYNDROME
  14. GABAPENTIN [Concomitant]
     Indication: HYPOAESTHESIA
  15. GABAPENTIN [Concomitant]
     Indication: PARAESTHESIA
  16. GABAPENTIN [Concomitant]
     Indication: RESTLESS LEGS SYNDROME

REACTIONS (22)
  - ABDOMINAL PAIN UPPER [None]
  - ANAEMIA [None]
  - APHASIA [None]
  - BLADDER PROLAPSE [None]
  - BLOOD CHLORIDE DECREASED [None]
  - BLOOD CHOLESTEROL INCREASED [None]
  - BLOOD GLUCOSE INCREASED [None]
  - BLOOD SODIUM DECREASED [None]
  - BLOOD TRIGLYCERIDES INCREASED [None]
  - DRY MOUTH [None]
  - DRY SKIN [None]
  - LOW DENSITY LIPOPROTEIN INCREASED [None]
  - LYMPHOCYTE PERCENTAGE DECREASED [None]
  - MICTURITION URGENCY [None]
  - NAUSEA [None]
  - NEUROGENIC BLADDER [None]
  - ORAL HERPES [None]
  - PSORIASIS [None]
  - RED BLOOD CELL COUNT DECREASED [None]
  - SPEECH DISORDER [None]
  - STRESS [None]
  - WHITE BLOOD CELL COUNT INCREASED [None]
